FAERS Safety Report 5924705-6 (Version None)
Quarter: 2008Q4

REPORT INFORMATION
  Report Type: 
  Country: None (occurrence: None)
  Receive Date: 20081016
  Receipt Date: 20080717
  Transmission Date: 20090506
  Serious: Yes (Hospitalization)
  Sender: FDA-Public Use
  Company Number: 2008S1009988

PATIENT
  Age: 67 Year
  Sex: Female

DRUGS (1)
  1. FLEET ENEMA (SODIUM PHOSPHATE) (SODIUM PHOSPHATE DIBASIC/SODIUM PHOSPH [Suspect]
     Indication: CONSTIPATION
     Dosage: UNKNOWN;069;RTL;UNKNOWN
     Route: 054

REACTIONS (4)
  - BLOOD PRESSURE DECREASED [None]
  - HYPERPHOSPHATAEMIA [None]
  - MALAISE [None]
  - SOMNOLENCE [None]
